FAERS Safety Report 7822159-6 (Version None)
Quarter: 2011Q4

REPORT INFORMATION
  Report Type: 
  Country: None (occurrence: None)
  Receive Date: 20111018
  Receipt Date: 20110426
  Transmission Date: 20120403
  Serious: No
  Sender: FDA-Public Use
  Company Number: US-ASTRAZENECA-2011SE09721

PATIENT
  Age: 26307 Day
  Sex: Female
  Weight: 72.6 kg

DRUGS (5)
  1. SYMBICORT [Suspect]
     Indication: CHRONIC OBSTRUCTIVE PULMONARY DISEASE
     Dosage: 160 MCG TWO TIMES A DAY
     Route: 055
     Dates: start: 20110208
  2. ASPIRIN [Concomitant]
     Indication: ARTHRITIS
  3. O2 [Concomitant]
     Route: 045
  4. ALBUTEROL NEBULIZER/ALBUTEROL HFA [Concomitant]
     Indication: CHRONIC OBSTRUCTIVE PULMONARY DISEASE
     Route: 055
  5. ALBUTEROL RESCUE INHALER [Concomitant]
     Indication: CHRONIC OBSTRUCTIVE PULMONARY DISEASE
     Route: 055

REACTIONS (3)
  - VISUAL IMPAIRMENT [None]
  - DIZZINESS [None]
  - SWOLLEN TONGUE [None]
